FAERS Safety Report 24892637 (Version 1)
Quarter: 2025Q1

REPORT INFORMATION
  Report Type: Spontaneous
  Country: NO (occurrence: NO)
  Receive Date: 20250128
  Receipt Date: 20250128
  Transmission Date: 20250409
  Serious: Yes (Other)
  Sender: NOVO NORDISK
  Company Number: None

PATIENT
  Age: 60 Year
  Sex: Male

DRUGS (4)
  1. WEGOVY [Suspect]
     Active Substance: SEMAGLUTIDE
     Indication: Overweight
     Dosage: 1.7 MG, QW(CONTINUED USE OF MEDICINAL PRODUCT )
     Route: 058
     Dates: start: 20240717
  2. LACTULOSE [Concomitant]
     Active Substance: LACTULOSE
     Indication: Constipation
     Dosage: 15 ML, QD
  3. LERKANIDIPIN ACTAVIS [Concomitant]
     Indication: Hypertension
     Dosage: 20 MG, QD (CONTINUED USE OF MEDICINAL PRODUCT)
  4. INUXAIR [Concomitant]
     Indication: Asthma
     Dosage: 6 ?G, BID (CONTINUED USE OF MEDICINAL PRODUCT)

REACTIONS (1)
  - Graves^ disease [Not Recovered/Not Resolved]

NARRATIVE: CASE EVENT DATE: 20241202
